FAERS Safety Report 18497966 (Version 1)
Quarter: 2020Q4

REPORT INFORMATION
  Report Type: Spontaneous
  Country: US (occurrence: US)
  Receive Date: 20201112
  Receipt Date: 20201112
  Transmission Date: 20210114
  Serious: No
  Sender: FDA-Public Use
  Company Number: US-UNITED THERAPEUTICS-UNT-2020-017644

PATIENT
  Sex: Female
  Weight: 83.45 kg

DRUGS (3)
  1. ADCIRCA [Concomitant]
     Active Substance: TADALAFIL
     Indication: PULMONARY ARTERIAL HYPERTENSION
     Dosage: UNK
     Route: 065
  2. REMODULIN [Suspect]
     Active Substance: TREPROSTINIL
     Indication: PULMONARY ARTERIAL HYPERTENSION
     Dosage: UNK, CONTINUING
     Route: 058
     Dates: start: 20140902
  3. REMODULIN [Suspect]
     Active Substance: TREPROSTINIL
     Dosage: 0.113 ?G/KG, CONTINUING
     Route: 058

REACTIONS (2)
  - Pruritus [Unknown]
  - Dry skin [Unknown]
